FAERS Safety Report 20053051 (Version 2)
Quarter: 2023Q1

REPORT INFORMATION
  Report Type: Spontaneous
  Country: US (occurrence: US)
  Receive Date: 20211110
  Receipt Date: 20230116
  Transmission Date: 20230417
  Serious: Yes (Death, Other)
  Sender: FDA-Public Use
  Company Number: US-PFIZER INC-202101479981

PATIENT
  Age: 54 Year
  Sex: Male

DRUGS (1)
  1. INLYTA [Suspect]
     Active Substance: AXITINIB
     Dosage: 5 MG
     Dates: start: 20211018

REACTIONS (2)
  - Death [Fatal]
  - Renal impairment [Unknown]

NARRATIVE: CASE EVENT DATE: 20211001
